FAERS Safety Report 21508137 (Version 1)
Quarter: 2022Q4

REPORT INFORMATION
  Report Type: Spontaneous
  Country: FR (occurrence: FR)
  Receive Date: 20221026
  Receipt Date: 20221026
  Transmission Date: 20230113
  Serious: Yes (Hospitalization)
  Sender: FDA-Public Use
  Company Number: None

PATIENT
  Age: 54 Year
  Sex: Male
  Weight: 172 kg

DRUGS (5)
  1. DIAZEPAM [Suspect]
     Active Substance: DIAZEPAM
     Indication: Schizophrenia
     Dosage: IF NECESSARY, UNIT DOSE: 15 GTT, FREQUENCY TIME : 2 HRS
     Route: 065
  2. LOXAPINE [Suspect]
     Active Substance: LOXAPINE
     Indication: Schizophrenia
     Dosage: 120 MILLIGRAM DAILY; 120 MG/D, LOXAPAC, ORAL SOLUTION, FREQUENCY TIME : 4 HRS
  3. TRIMEPRAZINE [Suspect]
     Active Substance: TRIMEPRAZINE
     Indication: Schizophrenia
     Dosage: A 22H, THERALENE 4 PER CENT, ORAL SOLUTION IN DROPS, UNIT DOSE : 20 GTT, FREQUENCY TIME : 1 DAY
  4. HALOPERIDOL DECANOATE [Suspect]
     Active Substance: HALOPERIDOL DECANOATE
     Indication: Schizophrenia
     Dosage: HALDOL DECANOAS, SOLUTION FOR INJECTION, FREQUENCY TIME : 28 DAYS, UNIT DOSE : 200 MG
     Dates: start: 20210615
  5. FOLIC ACID [Concomitant]
     Active Substance: FOLIC ACID
     Indication: Schizophrenia
     Dosage: UNIT DOSE : 10 MG, FREQUENCY TIME : 1 DAY

REACTIONS (1)
  - Cold type haemolytic anaemia [Not Recovered/Not Resolved]

NARRATIVE: CASE EVENT DATE: 20220701
